FAERS Safety Report 17477654 (Version 8)
Quarter: 2021Q3

REPORT INFORMATION
  Report Type: Spontaneous
  Country: FR (occurrence: FR)
  Receive Date: 20200228
  Receipt Date: 20210805
  Transmission Date: 20211014
  Serious: Yes (Hospitalization, Other)
  Sender: FDA-Public Use
  Company Number: FR-US-PROVELL PHARMACEUTICALS LLC-E2B_90075161

PATIENT
  Age: 85 Year
  Sex: Female

DRUGS (4)
  1. LEVOTHYROX [Suspect]
     Active Substance: LEVOTHYROXINE
     Indication: THYROID DISORDER
  2. LEVOTHYROX [Suspect]
     Active Substance: LEVOTHYROXINE
     Dosage: REINTRODUCED
  3. LEVOTHYROX [Suspect]
     Active Substance: LEVOTHYROXINE
     Dates: start: 2020, end: 2020
  4. EUTHYROX [Suspect]
     Active Substance: LEVOTHYROXINE SODIUM
     Indication: THYROID DISORDER
     Dates: end: 2020

REACTIONS (31)
  - Polyneuropathy [Not Recovered/Not Resolved]
  - Wound [Unknown]
  - Fatigue [Unknown]
  - Decreased appetite [Recovered/Resolved]
  - Drug hypersensitivity [Unknown]
  - Weight decreased [Unknown]
  - Pain [Not Recovered/Not Resolved]
  - Swelling [Not Recovered/Not Resolved]
  - Muscular weakness [Unknown]
  - Drug ineffective [Unknown]
  - Treatment noncompliance [Unknown]
  - COVID-19 [Unknown]
  - Discomfort [Unknown]
  - Fall [Not Recovered/Not Resolved]
  - Neck pain [Unknown]
  - Pain in extremity [Not Recovered/Not Resolved]
  - Wrist fracture [Unknown]
  - Drug intolerance [Not Recovered/Not Resolved]
  - Dysphagia [Unknown]
  - Oropharyngeal discomfort [Unknown]
  - Balance disorder [Not Recovered/Not Resolved]
  - Parathyroid disorder [Not Recovered/Not Resolved]
  - Feeling abnormal [Unknown]
  - Dyspnoea [Recovering/Resolving]
  - Middle insomnia [Unknown]
  - Gait disturbance [Not Recovered/Not Resolved]
  - Malaise [Unknown]
  - Blood thyroid stimulating hormone abnormal [Unknown]
  - Oedema peripheral [Unknown]
  - Blood thyroid stimulating hormone increased [Unknown]
  - Limb discomfort [Not Recovered/Not Resolved]

NARRATIVE: CASE EVENT DATE: 2020
